FAERS Safety Report 9219989 (Version 1)
Quarter: 2013Q2

REPORT INFORMATION
  Report Type: Report from Study
  Country: FR (occurrence: FR)
  Receive Date: 20130409
  Receipt Date: 20130409
  Transmission Date: 20140414
  Serious: Yes (Death, Hospitalization)
  Sender: FDA-Public Use
  Company Number: FR-ROCHE-1210561

PATIENT
  Age: 56 Year
  Sex: Female
  Weight: 57 kg

DRUGS (16)
  1. PEG-INTERFERON ALFA 2A [Suspect]
     Indication: HEPATITIS C
     Route: 065
     Dates: start: 20121001, end: 20121128
  2. RIBAVIRIN [Suspect]
     Indication: HEPATITIS C
     Route: 048
     Dates: start: 20121001, end: 20121128
  3. RIBAVIRIN [Suspect]
     Route: 048
     Dates: start: 20121205, end: 20130125
  4. GS-7977 [Suspect]
     Indication: HEPATITIS C
     Route: 048
     Dates: start: 20121205, end: 20130125
  5. NEORAL [Concomitant]
     Route: 065
     Dates: start: 20111207
  6. PREDNISONE [Concomitant]
     Route: 065
     Dates: start: 20111207
  7. PREDNISONE [Concomitant]
     Route: 065
     Dates: start: 20130110
  8. NORFLOXACIN [Concomitant]
     Route: 065
     Dates: start: 20121001
  9. AMLODIPIN [Concomitant]
     Route: 065
     Dates: start: 201211
  10. FUROSEMIDE [Concomitant]
     Route: 065
     Dates: start: 201205
  11. SPIRONOLACTONE [Concomitant]
     Route: 065
     Dates: start: 201205
  12. PANTOPRAZOLE [Concomitant]
  13. TAZOCILLINE [Concomitant]
  14. PARACETAMOL [Concomitant]
  15. MYCOPHENOLATE MOFETIL [Concomitant]
     Route: 065
  16. CIDOFOVIR [Concomitant]

REACTIONS (1)
  - Autoimmune hepatitis [Fatal]
